FAERS Safety Report 19720233 (Version 1)
Quarter: 2021Q3

REPORT INFORMATION
  Report Type: Spontaneous
  Country: US (occurrence: US)
  Receive Date: 20210819
  Receipt Date: 20210819
  Transmission Date: 20211014
  Serious: Yes (Hospitalization)
  Sender: FDA-Public Use
  Company Number: None

PATIENT
  Age: 49 Year
  Sex: Female

DRUGS (2)
  1. REGEN?COV [Concomitant]
     Active Substance: CASIRIVIMAB\IMDEVIMAB
     Dates: start: 20210818, end: 20210818
  2. REGEN?COV [Suspect]
     Active Substance: CASIRIVIMAB\IMDEVIMAB
     Indication: COVID-19
     Dosage: ?          OTHER FREQUENCY:X 1;?
     Route: 042
     Dates: start: 20210818, end: 20210818

REACTIONS (7)
  - Oxygen saturation decreased [None]
  - Heart rate increased [None]
  - Feeling hot [None]
  - Infusion related reaction [None]
  - Blood glucose increased [None]
  - Body temperature increased [None]
  - Chills [None]

NARRATIVE: CASE EVENT DATE: 20210818
